FAERS Safety Report 9012485 (Version 1)
Quarter: 2013Q1

REPORT INFORMATION
  Report Type: Spontaneous
  Country: US (occurrence: US)
  Receive Date: 20130114
  Receipt Date: 20130114
  Transmission Date: 20140127
  Serious: Yes (Other)
  Sender: FDA-Public Use
  Company Number: CHPA2013US000656

PATIENT
  Age: 49 Year
  Sex: Male

DRUGS (1)
  1. BUCKLEY^S COUGH MIXTURE [Suspect]
     Indication: COUGH
     Dosage: UNK, AS NEEDED
     Route: 048

REACTIONS (1)
  - Heart rate irregular [Not Recovered/Not Resolved]
